FAERS Safety Report 5001802-3 (Version None)
Quarter: 2006Q2

REPORT INFORMATION
  Report Type: 
  Country: None (occurrence: None)
  Receive Date: 20060515
  Receipt Date: 20001002
  Transmission Date: 20061013
  Serious: Yes (Disabling)
  Sender: FDA-Public Use
  Company Number: US-GLAXOSMITHKLINE-A0336666A

PATIENT
  Age: 39 Year
  Sex: Female
  Weight: 74.83 kg

DRUGS (5)
  1. PAXIL [Suspect]
     Indication: ANXIETY
     Dosage: 40MG PER DAY
     Route: 048
     Dates: start: 19980101, end: 20000601
  2. PAXIL [Suspect]
     Dosage: 30MG PER DAY
     Route: 048
     Dates: start: 20000601, end: 20000701
  3. PAXIL [Suspect]
     Dosage: 20MG PER DAY
     Route: 048
     Dates: start: 20000701, end: 20000801
  4. PAXIL [Suspect]
     Dosage: 10MG PER DAY
     Route: 048
     Dates: start: 20000801, end: 20000901
  5. WELLBUTRIN [Suspect]
     Dosage: 100MG TWICE PER DAY
     Route: 048
     Dates: start: 20000523

REACTIONS (15)
  - ANGER [None]
  - DEPRESSION [None]
  - DIZZINESS [None]
  - DRUG INEFFECTIVE [None]
  - DRUG WITHDRAWAL SYNDROME [None]
  - EMOTIONAL DISORDER [None]
  - FEELING ABNORMAL [None]
  - FEMALE SEXUAL DYSFUNCTION [None]
  - HYPERACUSIS [None]
  - IRRITABILITY [None]
  - MUSCLE SPASMS [None]
  - NAUSEA [None]
  - PHOTOSENSITIVITY REACTION [None]
  - SENSORY DISTURBANCE [None]
  - TEMPERATURE INTOLERANCE [None]
